FAERS Safety Report 4845233-5 (Version None)
Quarter: 2005Q4

REPORT INFORMATION
  Report Type: 
  Country: None (occurrence: None)
  Receive Date: 20051125
  Receipt Date: 20051118
  Transmission Date: 20060501
  Serious: Yes (Hospitalization)
  Sender: FDA-Public Use
  Company Number: US-2005-024458

PATIENT
  Age: 33 Year
  Sex: Female
  Weight: 54.4 kg

DRUGS (1)
  1. YASMIN [Suspect]
     Indication: DYSMENORRHOEA
     Dosage: 1 TABS 1X/DAY ORAL
     Route: 048
     Dates: start: 20020101, end: 20050801

REACTIONS (2)
  - DYSPNOEA [None]
  - PALPITATIONS [None]
